FAERS Safety Report 22082475 (Version 1)
Quarter: 2023Q1

REPORT INFORMATION
  Report Type: Other
  Country: PY (occurrence: None)
  Receive Date: 20230310
  Receipt Date: 20230310
  Transmission Date: 20230418
  Serious: Yes (Hospitalization)
  Sender: FDA-Public Use
  Company Number: PY-ROCHE-3296933

PATIENT
  Age: 5 Year
  Sex: Female
  Weight: 11.2 kg

DRUGS (1)
  1. EVRYSDI [Suspect]
     Active Substance: RISDIPLAM
     Indication: Spinal muscular atrophy
     Dosage: FREQUENCY WAS NOT REPORTED
     Route: 048
     Dates: start: 20211123

REACTIONS (4)
  - Pneumonia [Recovered/Resolved]
  - Bronchial obstruction [Recovered/Resolved]
  - Pulmonary sepsis [Recovered/Resolved]
  - Oxygen saturation decreased [Recovered/Resolved]

NARRATIVE: CASE EVENT DATE: 20230217
